FAERS Safety Report 4575966-X (Version None)
Quarter: 2005Q1

REPORT INFORMATION
  Report Type: 
  Country: None (occurrence: None)
  Receive Date: 20050204
  Receipt Date: 20050127
  Transmission Date: 20050727
  Serious: Yes (Other)
  Sender: FDA-Public Use
  Company Number: 2004-12-0257

PATIENT
  Age: 17 Year
  Sex: Female
  Weight: 120 kg

DRUGS (6)
  1. CLARINEX [Suspect]
     Indication: SUICIDE ATTEMPT
     Dosage: 20 MG ORAL
     Route: 048
  2. NEDOLON P TABLETS [Suspect]
     Indication: SUICIDE ATTEMPT
     Dosage: 6 TABLETS ORAL
     Route: 048
  3. RANITIC (RANITIDINE HYDROCHLORIDE) TABLETS [Suspect]
     Indication: SUICIDE ATTEMPT
     Dosage: 5 TABLETS ORAL
     Route: 048
  4. IBUPROFEN TABLETS [Suspect]
     Indication: SUICIDE ATTEMPT
     Dosage: 1600 MG ORAL
     Route: 048
  5. ROTHIXTHROMYCIN TABLETS [Suspect]
     Indication: SUICIDE ATTEMPT
     Dosage: 300 MG ORAL
     Route: 048
  6. CEFUROXIME [Suspect]
     Indication: SUICIDE ATTEMPT
     Dosage: 1000MG ORAL
     Route: 048

REACTIONS (3)
  - INTENTIONAL MISUSE [None]
  - SUICIDE ATTEMPT [None]
  - VOMITING [None]
